FAERS Safety Report 6894477-X (Version None)
Quarter: 2010Q3

REPORT INFORMATION
  Report Type: 
  Country: None (occurrence: None)
  Receive Date: 20100802
  Receipt Date: 20080918
  Transmission Date: 20110219
  Serious: No
  Sender: FDA-Public Use
  Company Number: US-PFIZER INC-2008079510

PATIENT
  Sex: Female
  Weight: 95.238 kg

DRUGS (2)
  1. NORVASC [Suspect]
     Indication: BLOOD PRESSURE
     Dosage: 10 MG, DAILY
     Route: 048
  2. LYRICA [Suspect]
     Indication: DIABETIC NEUROPATHY
     Dosage: 75 MG, DAILY
     Route: 048

REACTIONS (1)
  - BLOOD PRESSURE INADEQUATELY CONTROLLED [None]
